FAERS Safety Report 23323906 (Version 1)
Quarter: 2023Q4

REPORT INFORMATION
  Report Type: Spontaneous
  Country: GB (occurrence: GB)
  Receive Date: 20231221
  Receipt Date: 20231221
  Transmission Date: 20240110
  Serious: Yes (Other)
  Sender: FDA-Public Use
  Company Number: GB-CELLTRION INC.-2023GB024151

PATIENT

DRUGS (2)
  1. INFLIXIMAB [Suspect]
     Active Substance: INFLIXIMAB
     Indication: Behcet^s syndrome
     Dosage: 120 MG EVERY 2 WEEKS
     Route: 058
     Dates: start: 20230919
  2. INFLIXIMAB [Suspect]
     Active Substance: INFLIXIMAB
     Indication: Episcleritis

REACTIONS (3)
  - Behcet^s syndrome [Unknown]
  - Drug ineffective [Unknown]
  - Intentional product use issue [Unknown]
